FAERS Safety Report 11423427 (Version 1)
Quarter: 2015Q3

REPORT INFORMATION
  Report Type: Other
  Country: JP (occurrence: JP)
  Receive Date: 20150827
  Receipt Date: 20150827
  Transmission Date: 20151125
  Serious: Yes (Hospitalization)
  Sender: FDA-Public Use
  Company Number: JP-ACTELION-A-CH2015-122969

PATIENT
  Age: 27 Year
  Sex: Female

DRUGS (4)
  1. EPOPROSTENOL. [Concomitant]
     Active Substance: EPOPROSTENOL
  2. SILDENAFIL. [Concomitant]
     Active Substance: SILDENAFIL
  3. TRACLEER [Suspect]
     Active Substance: BOSENTAN
     Indication: PULMONARY ARTERIAL HYPERTENSION
     Route: 048
  4. TADALAFIL [Concomitant]
     Active Substance: TADALAFIL

REACTIONS (11)
  - Hyperthyroidism [Unknown]
  - Autoimmune thyroiditis [Unknown]
  - Pulmonary oedema [Recovered/Resolved]
  - Condition aggravated [Recovered/Resolved]
  - Tachycardia [Unknown]
  - Blood pressure increased [Unknown]
  - Pulmonary arterial hypertension [Recovered/Resolved]
  - Blood culture positive [Recovered/Resolved]
  - Aneurysm repair [Recovered/Resolved]
  - Lung transplant [Recovered/Resolved]
  - Thyroiditis [Unknown]
